FAERS Safety Report 18959456 (Version 1)
Quarter: 2021Q1

REPORT INFORMATION
  Report Type: Spontaneous
  Country: IR (occurrence: IR)
  Receive Date: 20210302
  Receipt Date: 20210302
  Transmission Date: 20210420
  Serious: Yes (Other)
  Sender: FDA-Public Use
  Company Number: IR-BIOMARINAP-IR-2021-135198

PATIENT
  Age: 5 Year
  Sex: Female
  Weight: 15 kg

DRUGS (1)
  1. VIMIZIM [Suspect]
     Active Substance: ELOSULFASE ALFA
     Indication: MUCOPOLYSACCHARIDOSIS IV
     Dosage: 25 MILLIGRAM, QW
     Route: 042
     Dates: start: 20200101

REACTIONS (1)
  - Bone marrow transplant [Unknown]
